FAERS Safety Report 17622250 (Version 1)
Quarter: 2020Q2

REPORT INFORMATION
  Report Type: Spontaneous
  Country: AU (occurrence: AU)
  Receive Date: 20200403
  Receipt Date: 20200403
  Transmission Date: 20200713
  Serious: Yes (Hospitalization)
  Sender: FDA-Public Use
  Company Number: AU-ASTRAZENECA-2020SE46204

PATIENT
  Age: 11784 Day
  Sex: Male

DRUGS (4)
  1. SEROQUEL [Concomitant]
     Active Substance: QUETIAPINE FUMARATE
     Dosage: ONCE PER DAY BEFORE BED
     Route: 048
  2. SEROQUEL XR [Suspect]
     Active Substance: QUETIAPINE FUMARATE
     Indication: SCHIZOPHRENIA
     Route: 048
     Dates: start: 20100101
  3. SOLIUM [CHLORDIAZEPOXIDE HYDROCHLORIDE] [Suspect]
     Active Substance: CHLORDIAZEPOXIDE HYDROCHLORIDE
     Route: 065
  4. SEROQUEL XR [Suspect]
     Active Substance: QUETIAPINE FUMARATE
     Indication: PSYCHOTIC DISORDER
     Route: 048
     Dates: start: 20100101

REACTIONS (10)
  - Nausea [Unknown]
  - Panic attack [Unknown]
  - Chills [Unknown]
  - Weight increased [Unknown]
  - Vomiting [Unknown]
  - Choking [Unknown]
  - Hyperhidrosis [Unknown]
  - Gastrooesophageal reflux disease [Unknown]
  - Heart rate increased [Unknown]
  - Anxiety [Unknown]

NARRATIVE: CASE EVENT DATE: 20180101
